FAERS Safety Report 9768283 (Version 1)
Quarter: 2013Q4

REPORT INFORMATION
  Report Type: Spontaneous
  Country: GB (occurrence: GB)
  Receive Date: 20131217
  Receipt Date: 20131217
  Transmission Date: 20140711
  Serious: Yes (Other)
  Sender: FDA-Public Use
  Company Number: GB-TEVA-450000ISR

PATIENT
  Age: 47 Year
  Sex: Female

DRUGS (4)
  1. SALMETEROL [Suspect]
     Indication: ASTHMA
     Dosage: 100 MICROGRAM DAILY;
     Route: 055
     Dates: start: 20131021, end: 20131028
  2. CLARITHROMYCIN [Interacting]
     Indication: LOWER RESPIRATORY TRACT INFECTION
     Dosage: 1000 MILLIGRAM DAILY;
     Route: 048
     Dates: start: 20131026, end: 20131028
  3. SALBUTAMOL [Concomitant]
     Indication: ASTHMA
  4. PREDNISOLONE [Concomitant]
     Indication: ASTHMA
     Dosage: 40 MILLIGRAM DAILY; WEANING DOWN.
     Route: 048

REACTIONS (7)
  - Drug interaction [Recovering/Resolving]
  - Restlessness [Recovering/Resolving]
  - Hypertension [Recovering/Resolving]
  - Palpitations [Recovering/Resolving]
  - Insomnia [Recovering/Resolving]
  - Tremor [Recovering/Resolving]
  - Agitation [Recovering/Resolving]
